FAERS Safety Report 18363915 (Version 1)
Quarter: 2020Q4

REPORT INFORMATION
  Report Type: Spontaneous
  Country: JP (occurrence: JP)
  Receive Date: 20201009
  Receipt Date: 20201009
  Transmission Date: 20210114
  Serious: Yes (Other)
  Sender: FDA-Public Use
  Company Number: JP-JNJFOC-20200934898

PATIENT
  Age: 86 Year
  Sex: Female

DRUGS (5)
  1. NORVASC [Suspect]
     Active Substance: AMLODIPINE BESYLATE
     Indication: HYPERTENSION
     Dosage: DOSE UNKNOWN
     Route: 048
  2. MAGMITT [Concomitant]
     Active Substance: MAGNESIUM OXIDE
     Indication: CONSTIPATION
     Dosage: DOSE UNKNOWN
     Route: 048
  3. REMINYL [Suspect]
     Active Substance: GALANTAMINE
     Indication: DEMENTIA WITH LEWY BODIES
     Dosage: DOSE UNKNOWN
     Route: 048
     Dates: start: 20180201
  4. LIPITOR [Concomitant]
     Active Substance: ATORVASTATIN CALCIUM
     Indication: DYSLIPIDAEMIA
     Dosage: DOSE UNKNOWN
     Route: 048
  5. GRANDAXIN [Concomitant]
     Active Substance: TOFISOPAM
     Dosage: DOSE UNKNOWN
     Route: 048

REACTIONS (4)
  - Renal impairment [Unknown]
  - Blood potassium abnormal [Unknown]
  - Product use in unapproved indication [Unknown]
  - Off label use [Unknown]

NARRATIVE: CASE EVENT DATE: 20180201
